FAERS Safety Report 18203616 (Version 1)
Quarter: 2020Q3

REPORT INFORMATION
  Report Type: Spontaneous
  Country: FR (occurrence: FR)
  Receive Date: 20200827
  Receipt Date: 20200827
  Transmission Date: 20201103
  Serious: Yes (Other)
  Sender: FDA-Public Use
  Company Number: FR-MYLANLABS-2020M1073258

PATIENT
  Age: 41 Year
  Sex: Male
  Weight: 54.3 kg

DRUGS (8)
  1. TOUJEO [Concomitant]
     Active Substance: INSULIN GLARGINE
     Dosage: UNK
  2. TAMSULOSINE MYLAN L.P. 0,4 MG, G?LULE ? LIB?RATION PROLONG?E [Suspect]
     Active Substance: TAMSULOSIN HYDROCHLORIDE
     Indication: URINARY RETENTION
     Dosage: 1 DOSAGE FORM, QD
     Route: 048
     Dates: start: 20200630, end: 20200630
  3. SERESTA [Suspect]
     Active Substance: OXAZEPAM
     Indication: PROPHYLAXIS
     Dosage: 50 MG X 2/J
     Route: 048
     Dates: start: 20200629, end: 20200630
  4. LOVENOX [Concomitant]
     Active Substance: ENOXAPARIN SODIUM
     Dosage: UNK
  5. DIAZEPAM ARROW [Suspect]
     Active Substance: DIAZEPAM
     Indication: PROPHYLAXIS
     Dosage: 4 DOSAGE FORM, QD
  6. PANTOPRAZOLE [Concomitant]
     Active Substance: PANTOPRAZOLE
     Dosage: UNK
  7. NICOPATCH [Suspect]
     Active Substance: NICOTINE
     Indication: PROPHYLAXIS
     Dosage: 1 PATCH PAR JOUR (21 MG/24H)
     Route: 062
     Dates: start: 20200629, end: 20200630
  8. DIFFU K [Concomitant]
     Active Substance: POTASSIUM CHLORIDE
     Dosage: UNK

REACTIONS (2)
  - Behaviour disorder [Recovered/Resolved]
  - Disorientation [Recovered/Resolved]

NARRATIVE: CASE EVENT DATE: 20200701
